FAERS Safety Report 4783776-3 (Version None)
Quarter: 2005Q3

REPORT INFORMATION
  Report Type: 
  Country: None (occurrence: None)
  Receive Date: 20050928
  Receipt Date: 20050919
  Transmission Date: 20060218
  Serious: Yes (Death)
  Sender: FDA-Public Use
  Company Number: 2005RR-00730

PATIENT
  Age: 51 Year
  Sex: Female

DRUGS (5)
  1. LORAZEPAM [Suspect]
  2. MIRTAZAPINE [Suspect]
  3. ZOPICLONE (ZOPICLONE) [Suspect]
  4. CHLORPROMAZINE TABLET 100MG BP (CHLORPROMAZINE) [Suspect]
  5. ETHANOL (ETHANOL) [Suspect]

REACTIONS (1)
  - OVERDOSE [None]
